FAERS Safety Report 5712043-6 (Version None)
Quarter: 2008Q2

REPORT INFORMATION
  Report Type: 
  Country: None (occurrence: None)
  Receive Date: 20080417
  Receipt Date: 20080404
  Transmission Date: 20081010
  Serious: Yes (Disabling, Other)
  Sender: FDA-Public Use
  Company Number: 08-000245

PATIENT
  Age: 34 Year
  Sex: Female

DRUGS (4)
  1. DOVONEX [Suspect]
     Indication: PSORIASIS
     Dosage: 0.005% QD, TOPICAL
     Route: 061
     Dates: start: 20080131, end: 20080201
  2. TACLONEX [Suspect]
     Indication: PSORIASIS
     Dosage: 0.005/.064%, TOPICAL
     Route: 061
     Dates: start: 20080131, end: 20080201
  3. VALACICLOVIR (VALACICLOVIR), 2G [Concomitant]
  4. REMICADE (INFLIXIMAB) INFUSION, 1.7857 MG [Concomitant]

REACTIONS (5)
  - ARTHRALGIA [None]
  - HEPATIC ENZYME INCREASED [None]
  - IMMOBILE [None]
  - JOINT STABILISATION [None]
  - RED BLOOD CELL SEDIMENTATION RATE INCREASED [None]
